FAERS Safety Report 12837847 (Version 1)
Quarter: 2016Q4

REPORT INFORMATION
  Report Type: Report from Study
  Country: US (occurrence: US)
  Receive Date: 20161012
  Receipt Date: 20161012
  Transmission Date: 20170207
  Serious: No
  Sender: FDA-Public Use
  Company Number: PHEH2016US026050

PATIENT
  Sex: Female

DRUGS (1)
  1. AFINITOR [Suspect]
     Active Substance: EVEROLIMUS
     Indication: STOMATITIS
     Dosage: 10 MG, UNK
     Route: 065

REACTIONS (2)
  - Product use issue [Unknown]
  - Stomatitis [Unknown]
